FAERS Safety Report 5937467-3 (Version None)
Quarter: 2008Q4

REPORT INFORMATION
  Report Type: 
  Country: None (occurrence: None)
  Receive Date: 20081031
  Receipt Date: 20081023
  Transmission Date: 20090506
  Serious: Yes (Other)
  Sender: FDA-Public Use
  Company Number: B0541961A

PATIENT
  Age: 86 Year
  Sex: Female

DRUGS (6)
  1. BACTROBAN [Suspect]
     Indication: DRUG USE FOR UNKNOWN INDICATION
     Route: 065
     Dates: start: 20080926, end: 20080927
  2. TRAMADOL HCL [Concomitant]
     Route: 065
  3. VIDISIC [Concomitant]
     Route: 047
  4. OSCOREL [Concomitant]
     Route: 048
  5. THYRAX [Concomitant]
  6. RANITIDINE [Concomitant]

REACTIONS (2)
  - AMNESIA [None]
  - FEELING ABNORMAL [None]
